FAERS Safety Report 18106511 (Version 1)
Quarter: 2020Q3

REPORT INFORMATION
  Report Type: Spontaneous
  Country: GB (occurrence: GB)
  Receive Date: 20200804
  Receipt Date: 20200804
  Transmission Date: 20201103
  Serious: Yes (Other)
  Sender: FDA-Public Use
  Company Number: GB-TEVA-2020-GB-1808854

PATIENT
  Age: 74 Year
  Sex: Male

DRUGS (1)
  1. ACITRETIN. [Suspect]
     Active Substance: ACITRETIN
     Indication: EPIDERMAL NAEVUS
     Route: 048
     Dates: start: 201910, end: 20200131

REACTIONS (2)
  - Asthma [Unknown]
  - Lower respiratory tract infection [Recovered/Resolved]

NARRATIVE: CASE EVENT DATE: 202001
